FAERS Safety Report 8421092-9 (Version None)
Quarter: 2012Q2

REPORT INFORMATION
  Report Type: 
  Country: None (occurrence: None)
  Receive Date: 20120604
  Receipt Date: 20120604
  Transmission Date: 20120825
  Serious: Yes (Hospitalization)
  Sender: FDA-Public Use
  Company Number: None

PATIENT
  Age: 65 Year
  Sex: Female
  Weight: 81.6475 kg

DRUGS (1)
  1. NITROFURANTOIN [Suspect]
     Indication: URINARY TRACT INFECTION
     Dosage: 100MG 1X DAY
     Dates: start: 20110906, end: 20110909

REACTIONS (3)
  - DRUG HYPERSENSITIVITY [None]
  - URINARY TRACT INFECTION [None]
  - MALAISE [None]
